FAERS Safety Report 25737265 (Version 1)
Quarter: 2025Q3

REPORT INFORMATION
  Report Type: Spontaneous
  Country: MY (occurrence: MY)
  Receive Date: 20250828
  Receipt Date: 20250828
  Transmission Date: 20251020
  Serious: Yes (Death)
  Sender: PFIZER
  Company Number: MY-PFIZER INC-PV202500102416

PATIENT
  Age: 43 Year
  Sex: Male

DRUGS (1)
  1. LORLATINIB [Suspect]
     Active Substance: LORLATINIB

REACTIONS (1)
  - Death [Fatal]

NARRATIVE: CASE EVENT DATE: 20250301
